FAERS Safety Report 4335680-2 (Version None)
Quarter: 2004Q2

REPORT INFORMATION
  Report Type: 
  Country: None (occurrence: None)
  Receive Date: 20040409
  Receipt Date: 20040405
  Transmission Date: 20050107
  Serious: Yes (Other)
  Sender: FDA-Public Use
  Company Number: US-GLAXOSMITHKLINE-A0506122A

PATIENT
  Age: 41 Year
  Sex: Female

DRUGS (4)
  1. BECLOMETHASONE DIPROPIONATE [Suspect]
     Dosage: 200MG TWICE PER DAY
     Route: 055
     Dates: start: 20031114
  2. ALBUTEROL [Concomitant]
     Indication: ASTHMA
     Dosage: 100MCG THREE TIMES PER DAY
  3. SALMETEROL [Concomitant]
     Dosage: 50MCG TWICE PER DAY
  4. ERYTHROMYCIN [Concomitant]
     Dosage: 250MG PER DAY
     Dates: start: 20031230

REACTIONS (2)
  - ABORTION SPONTANEOUS [None]
  - DRUG EXPOSURE DURING PREGNANCY [None]
